FAERS Safety Report 4786862-7 (Version None)
Quarter: 2005Q4

REPORT INFORMATION
  Report Type: 
  Country: None (occurrence: None)
  Receive Date: 20051004
  Receipt Date: 20050922
  Transmission Date: 20060501
  Serious: Yes (Other)
  Sender: FDA-Public Use
  Company Number: 2005UW14198

PATIENT
  Age: 74 Year
  Sex: Female

DRUGS (6)
  1. SEROQUEL [Suspect]
     Route: 048
  2. EFFEXOR XR [Suspect]
  3. LORAZEPAM [Suspect]
  4. PANTOPRAZOLE SODIUM [Suspect]
  5. VASOTEC [Suspect]
  6. DIGOXIN [Suspect]

REACTIONS (5)
  - ATRIOVENTRICULAR BLOCK FIRST DEGREE [None]
  - COMA [None]
  - DRUG LEVEL INCREASED [None]
  - INTENTIONAL DRUG MISUSE [None]
  - OVERDOSE [None]
